FAERS Safety Report 7139371-4 (Version None)
Quarter: 2010Q4

REPORT INFORMATION
  Report Type: 
  Country: None (occurrence: None)
  Receive Date: 20101206
  Receipt Date: 20101124
  Transmission Date: 20110411
  Serious: Yes (Hospitalization)
  Sender: FDA-Public Use
  Company Number: JP-AMGEN-JPNCT2010001917

PATIENT

DRUGS (12)
  1. PANITUMUMAB [Suspect]
     Indication: COLORECTAL CANCER
     Dosage: 6 MG, Q2WK
     Route: 041
     Dates: start: 20100721, end: 20100914
  2. PANITUMUMAB [Suspect]
     Dosage: 6 MG, Q2WK
     Route: 041
     Dates: start: 20101012
  3. IRINOTECAN HYDROCHLORIDE [Suspect]
     Indication: COLORECTAL CANCER
     Route: 041
     Dates: start: 20100721
  4. IRINOTECAN HYDROCHLORIDE [Suspect]
     Route: 041
     Dates: start: 20100721, end: 20101011
  5. IRINOTECAN HYDROCHLORIDE [Suspect]
     Route: 041
     Dates: start: 20101012
  6. FLUOROURACIL [Suspect]
     Indication: COLORECTAL CANCER
     Route: 040
     Dates: start: 20100721
  7. FLUOROURACIL [Suspect]
     Route: 041
     Dates: start: 20100721
  8. FLUOROURACIL [Suspect]
     Route: 041
     Dates: start: 20100721, end: 20101011
  9. FLUOROURACIL [Suspect]
     Route: 041
     Dates: start: 20101012
  10. CALCIUM LEVOFOLINATE [Concomitant]
     Indication: COLORECTAL CANCER
     Route: 041
     Dates: start: 20100721
  11. RENIVACE [Concomitant]
     Route: 048
  12. PERDIPINE [Concomitant]
     Route: 048

REACTIONS (4)
  - ACNE [None]
  - EYE PRURITUS [None]
  - NEUTROPHIL COUNT DECREASED [None]
  - STOMATITIS [None]
